FAERS Safety Report 8847261 (Version 1)
Quarter: 2012Q4

REPORT INFORMATION
  Report Type: 
  Country: BR (occurrence: BR)
  Receive Date: 20121018
  Receipt Date: 20121018
  Transmission Date: 20130627
  Serious: Yes (Hospitalization, Other)
  Sender: FDA-Public Use
  Company Number: BR-ROCHE-1142733

PATIENT
  Age: 26 Year
  Sex: Female
  Weight: 80.09 kg

DRUGS (14)
  1. OMALIZUMAB [Suspect]
     Indication: ASTHMA
     Route: 065
  2. BUDESONIDE [Concomitant]
  3. HYDROCHLOROTHIAZIDE [Concomitant]
  4. ALENDRONATE [Concomitant]
  5. NIFEDIPINE [Concomitant]
  6. OMEPRAZOLE [Concomitant]
  7. TAPAZOL [Concomitant]
  8. PREDNISONE [Concomitant]
  9. CORTICOSTEROIDS (UNK INGREDIENTS) [Concomitant]
     Route: 065
     Dates: start: 2005
  10. BAMIFYLLINE [Concomitant]
     Route: 065
  11. BECLOMETHASONE [Concomitant]
     Route: 065
  12. SALBUTAMOL [Concomitant]
  13. XANTHINE [Concomitant]
  14. FORMOTEROL [Concomitant]

REACTIONS (3)
  - Asthma [Unknown]
  - Exposure during pregnancy [Unknown]
  - Middle insomnia [Unknown]
